FAERS Safety Report 21750791 (Version 4)
Quarter: 2023Q2

REPORT INFORMATION
  Report Type: Spontaneous
  Country: US (occurrence: US)
  Receive Date: 20221219
  Receipt Date: 20230612
  Transmission Date: 20230722
  Serious: Yes (Other)
  Sender: FDA-Public Use
  Company Number: US-BRISTOL-MYERS SQUIBB COMPANY-2022-154286

PATIENT
  Age: 80 Year
  Sex: Male
  Weight: 99.79 kg

DRUGS (1)
  1. REVLIMID [Suspect]
     Active Substance: LENALIDOMIDE
     Indication: Plasma cell myeloma
     Dosage: 3W (WEEK), 1W (WEEK) OFF, 21D OF 28DAYS
     Route: 048
     Dates: start: 20221101

REACTIONS (6)
  - Thrombocytopenia [Unknown]
  - Constipation [Unknown]
  - Gingivitis [Unknown]
  - Hyphaema [Unknown]
  - Weight decreased [Unknown]
  - Hypotension [Unknown]

NARRATIVE: CASE EVENT DATE: 20230508
